FAERS Safety Report 25219308 (Version 1)
Quarter: 2025Q2

REPORT INFORMATION
  Report Type: Spontaneous
  Country: US (occurrence: US)
  Receive Date: 20250421
  Receipt Date: 20250421
  Transmission Date: 20250717
  Serious: Yes (Life-Threatening, Hospitalization, Other)
  Sender: EPIC PHARM
  Company Number: US-EPICPHARMA-US-2025EPCLIT00466

PATIENT
  Age: 32 Year
  Sex: Female

DRUGS (2)
  1. BUPROPION HYDROCHLORIDE [Suspect]
     Active Substance: BUPROPION HYDROCHLORIDE
     Indication: Product used for unknown indication
     Route: 048
  2. PROPRANOLOL [Suspect]
     Active Substance: PROPRANOLOL HYDROCHLORIDE
     Indication: Product used for unknown indication
     Route: 048

REACTIONS (8)
  - Multiple organ dysfunction syndrome [Recovered/Resolved]
  - Cardiogenic shock [Recovered/Resolved]
  - Ventricular tachycardia [Recovered/Resolved]
  - Unresponsive to stimuli [Recovered/Resolved]
  - Toxicity to various agents [Recovered/Resolved]
  - Respiratory failure [Recovered/Resolved]
  - Cardiac arrest [Recovered/Resolved]
  - Intentional overdose [Unknown]
